FAERS Safety Report 20703573 (Version 2)
Quarter: 2022Q2

REPORT INFORMATION
  Report Type: Spontaneous
  Country: TR (occurrence: TR)
  Receive Date: 20220413
  Receipt Date: 20220503
  Transmission Date: 20220720
  Serious: Yes (Death, Other)
  Sender: FDA-Public Use
  Company Number: TR-AMGEN-TURSP2022061573

PATIENT

DRUGS (3)
  1. FILGRASTIM [Suspect]
     Active Substance: FILGRASTIM
     Indication: Haematopoietic stem cell mobilisation
     Dosage: 5 MICROGRAM/KILOGRAM, BID
     Route: 065
  2. CYCLOPHOSPHAMIDE [Suspect]
     Active Substance: CYCLOPHOSPHAMIDE
     Indication: Haematopoietic stem cell mobilisation
     Dosage: 4.000 MG/M
     Route: 065
  3. PLERIXAFOR [Suspect]
     Active Substance: PLERIXAFOR
     Indication: Haematopoietic stem cell mobilisation
     Dosage: UNK
     Route: 065

REACTIONS (7)
  - Death [Fatal]
  - Plasma cell myeloma [Unknown]
  - Metastases to nervous system [Unknown]
  - Myocardial infarction [Unknown]
  - Cardiac failure [Unknown]
  - Treatment failure [Unknown]
  - Therapy partial responder [Unknown]
